FAERS Safety Report 20941139 (Version 1)
Quarter: 2022Q2

REPORT INFORMATION
  Report Type: Spontaneous
  Country: US (occurrence: US)
  Receive Date: 20220609
  Receipt Date: 20220609
  Transmission Date: 20220721
  Serious: No
  Sender: FDA-Public Use
  Company Number: US-VIIV HEALTHCARE LIMITED-US2022AMR086475

PATIENT
  Age: 23 Year
  Sex: Female

DRUGS (6)
  1. RILPIVIRINE [Suspect]
     Active Substance: RILPIVIRINE
     Indication: HIV infection
     Dosage: UNK, EVERY MONTHLY
     Route: 065
     Dates: start: 202110
  2. RILPIVIRINE [Suspect]
     Active Substance: RILPIVIRINE
     Route: 065
     Dates: start: 202203
  3. CABOTEGRAVIR [Suspect]
     Active Substance: CABOTEGRAVIR
     Indication: HIV infection
     Dosage: UNK, EVERY MONTHLY
     Route: 065
     Dates: start: 202110
  4. CABOTEGRAVIR [Suspect]
     Active Substance: CABOTEGRAVIR
     Dosage: 3 ML, EVERY 2 MONTHS
     Route: 065
     Dates: start: 202203
  5. VOCABRIA [CABOTEGRAVIR SODIUM] [Concomitant]
     Indication: HIV infection
     Dosage: UNK
     Route: 048
     Dates: start: 202109
  6. EDURANT [Concomitant]
     Active Substance: RILPIVIRINE HYDROCHLORIDE
     Indication: HIV infection
     Dosage: UNK
     Route: 048
     Dates: start: 202109

REACTIONS (1)
  - Viral load increased [Unknown]
